FAERS Safety Report 7940047-1 (Version None)
Quarter: 2011Q4

REPORT INFORMATION
  Report Type: 
  Country: None (occurrence: None)
  Receive Date: 20111125
  Receipt Date: 20111116
  Transmission Date: 20120403
  Serious: Yes (Other)
  Sender: FDA-Public Use
  Company Number: US-BAYER-2011-047425

PATIENT
  Age: 41 Year
  Sex: Female
  Weight: 77 kg

DRUGS (11)
  1. JANUMET [Concomitant]
     Dosage: UNK
     Dates: start: 20050101
  2. XANAX [Concomitant]
  3. SYNTHROID [Concomitant]
  4. FLONASE [Concomitant]
  5. LEVOTHYROXINE SODIUM [Concomitant]
     Dosage: 100 ?G, UNK
  6. KEFLEX [Concomitant]
  7. YASMIN [Suspect]
     Dosage: UNK
     Dates: start: 20050501, end: 20100601
  8. DROSPIRENONE AND ETHINYL ESTRADIOL [Suspect]
     Dosage: UNK
     Dates: start: 20050501, end: 20100601
  9. NAPROXEN SODIUM AND PSEUDOEPHEDRINE HYDROCHLORIDE [Concomitant]
     Dosage: UNK
     Dates: start: 20060601, end: 20110201
  10. ALPRAZOLAM [Concomitant]
     Dosage: UNK
     Dates: start: 20050101
  11. VICODIN [Concomitant]

REACTIONS (9)
  - INJURY [None]
  - EMOTIONAL DISTRESS [None]
  - GALLBLADDER DISORDER [None]
  - ANXIETY [None]
  - PAIN [None]
  - VOMITING [None]
  - ABDOMINAL PAIN UPPER [None]
  - BILIARY DYSKINESIA [None]
  - CHOLECYSTITIS [None]
